FAERS Safety Report 13912957 (Version 1)
Quarter: 2017Q3

REPORT INFORMATION
  Report Type: Spontaneous
  Country: US (occurrence: US)
  Receive Date: 20170828
  Receipt Date: 20170828
  Transmission Date: 20171127
  Serious: Yes (Hospitalization, Other)
  Sender: FDA-Public Use
  Company Number: US-TEVA-800367USA

PATIENT
  Age: 74 Year
  Sex: Female

DRUGS (11)
  1. METOLAZONE. [Concomitant]
     Active Substance: METOLAZONE
     Route: 065
  2. SPIRONOLACTONE. [Suspect]
     Active Substance: SPIRONOLACTONE
     Route: 065
  3. POTASSIUM CHLORIDE. [Concomitant]
     Active Substance: POTASSIUM CHLORIDE
     Route: 065
  4. CARVEDILOL. [Concomitant]
     Active Substance: CARVEDILOL
     Route: 065
  5. SIMVASTATIN. [Concomitant]
     Active Substance: SIMVASTATIN
     Route: 065
  6. PAROXETINE. [Concomitant]
     Active Substance: PAROXETINE
     Route: 065
  7. ASPIRIN. [Concomitant]
     Active Substance: ASPIRIN
     Route: 065
  8. INSULIN [Concomitant]
     Active Substance: INSULIN NOS
     Route: 065
  9. ISOPHANE INSULIN [Concomitant]
     Active Substance: INSULIN NOS
     Indication: DIABETES MELLITUS
     Dosage: 55 UNITS (U) IN THE MORNING AND 35U
     Route: 065
  10. GLUCOSE [Interacting]
     Active Substance: DEXTROSE
     Indication: HYPOGLYCAEMIA
     Dosage: RECEIVED 25G INFUSION TWO TIMES
     Route: 041
  11. BUMETANIDE. [Concomitant]
     Active Substance: BUMETANIDE
     Route: 065

REACTIONS (3)
  - Cardiac arrest [Recovered/Resolved]
  - Hyperkalaemia [Recovered/Resolved]
  - Drug interaction [Recovered/Resolved]
